FAERS Safety Report 24280763 (Version 2)
Quarter: 2024Q4

REPORT INFORMATION
  Report Type: Report from Study
  Country: CA (occurrence: CA)
  Receive Date: 20240904
  Receipt Date: 20241011
  Transmission Date: 20250114
  Serious: Yes (Other)
  Sender: TAKEDA
  Company Number: CA-TAKEDA-2023TUS023051

PATIENT
  Age: 67 Year
  Sex: Female

DRUGS (7)
  1. VEDOLIZUMAB [Suspect]
     Active Substance: VEDOLIZUMAB
     Indication: Colitis ulcerative
     Dosage: 300 MILLIGRAM
     Route: 042
     Dates: start: 20220628
  2. VEDOLIZUMAB [Suspect]
     Active Substance: VEDOLIZUMAB
     Dosage: 300 MILLIGRAM
     Route: 042
  3. PANTOPRAZOLE [Concomitant]
     Active Substance: PANTOPRAZOLE
     Dosage: UNK
  4. CYCLOBENZAPRINE [Concomitant]
     Active Substance: CYCLOBENZAPRINE
     Dosage: UNK
  5. BUTYLSCOPOLAMINE BROMIDE [Concomitant]
     Active Substance: BUTYLSCOPOLAMINE BROMIDE
     Dosage: UNK
  6. PINAVERIUM BROMIDE [Concomitant]
     Active Substance: PINAVERIUM BROMIDE
     Dosage: UNK
  7. NAPROXEN [Concomitant]
     Active Substance: NAPROXEN
     Dosage: UNK

REACTIONS (25)
  - Colitis ulcerative [Unknown]
  - Superior mesenteric artery syndrome [Unknown]
  - Nephrolithiasis [Unknown]
  - Pouchitis [Unknown]
  - Haemoglobin abnormal [Unknown]
  - Frequent bowel movements [Unknown]
  - Chronic gastritis [Unknown]
  - Mucous stools [Unknown]
  - Pain [Unknown]
  - Affective disorder [Unknown]
  - Insomnia [Unknown]
  - Drug ineffective [Unknown]
  - Treatment noncompliance [Unknown]
  - Biliary cyst [Unknown]
  - Hepatic steatosis [Unknown]
  - Iron deficiency anaemia [Unknown]
  - Helicobacter gastritis [Unknown]
  - Gastrooesophageal reflux disease [Unknown]
  - Intervertebral disc degeneration [Unknown]
  - Depression [Unknown]
  - Cytomegalovirus infection [Unknown]
  - Vomiting [Unknown]
  - Blood pressure increased [Unknown]
  - Arthralgia [Unknown]
  - Nausea [Unknown]

NARRATIVE: CASE EVENT DATE: 20221031
